FAERS Safety Report 18227800 (Version 1)
Quarter: 2020Q3

REPORT INFORMATION
  Report Type: Spontaneous
  Country: US (occurrence: US)
  Receive Date: 20200903
  Receipt Date: 20200903
  Transmission Date: 20201103
  Serious: No
  Sender: FDA-Public Use
  Company Number: US-JNJFOC-20200842089

PATIENT
  Age: 61 Year
  Sex: Female
  Weight: 46.76 kg

DRUGS (1)
  1. PEPCID AC [Suspect]
     Active Substance: FAMOTIDINE
     Indication: ANTACID THERAPY
     Dosage: 2 TWICE DAILY (1 IN THE MORNING AND 1 AT NIGHT)?LAST DATE OF USAGE ? 22?AUG?2020
     Route: 048
     Dates: start: 20200821

REACTIONS (1)
  - Gastric disorder [Unknown]

NARRATIVE: CASE EVENT DATE: 20200822
